FAERS Safety Report 8027735-6 (Version None)
Quarter: 2012Q1

REPORT INFORMATION
  Report Type: 
  Country: None (occurrence: None)
  Receive Date: 20120106
  Receipt Date: 20120102
  Transmission Date: 20120608
  Serious: Yes (Death, Hospitalization)
  Sender: FDA-Public Use
  Company Number: TR-CELGENEUS-161-21880-11120306

PATIENT
  Sex: Male

DRUGS (2)
  1. DEXAMETHASONE [Concomitant]
     Indication: MULTIPLE MYELOMA
     Route: 065
     Dates: start: 20110920, end: 20111101
  2. REVLIMID [Suspect]
     Indication: MULTIPLE MYELOMA
     Dosage: 25 MILLIGRAM
     Route: 048
     Dates: start: 20110920

REACTIONS (4)
  - IMMUNE SYSTEM DISORDER [None]
  - DEHYDRATION [None]
  - RESPIRATORY FAILURE [None]
  - INFECTION [None]
